FAERS Safety Report 16670260 (Version 2)
Quarter: 2021Q2

REPORT INFORMATION
  Report Type: Report from Study
  Country: US (occurrence: US)
  Receive Date: 20190805
  Receipt Date: 20210621
  Transmission Date: 20210716
  Serious: Yes (Hospitalization)
  Sender: FDA-Public Use
  Company Number: US-SHIRE-US201924210

PATIENT
  Sex: Male

DRUGS (8)
  1. TEDUGLUTIDE [Suspect]
     Active Substance: TEDUGLUTIDE
     Indication: SHORT-BOWEL SYNDROME
     Dosage: 0.315 INTERNATIONAL UNIT
     Route: 058
     Dates: start: 20180904
  2. TEDUGLUTIDE [Suspect]
     Active Substance: TEDUGLUTIDE
     Dosage: 0.215 INTERNATIONAL UNIT, QD
     Route: 050
     Dates: start: 20180904
  3. TEDUGLUTIDE [Suspect]
     Active Substance: TEDUGLUTIDE
     Indication: SHORT-BOWEL SYNDROME
     Dosage: 0.315 INTERNATIONAL UNIT
     Route: 058
     Dates: start: 20180904
  4. TEDUGLUTIDE [Suspect]
     Active Substance: TEDUGLUTIDE
     Dosage: 0.215 INTERNATIONAL UNIT, QD
     Route: 050
     Dates: start: 20180904
  5. TEDUGLUTIDE [Suspect]
     Active Substance: TEDUGLUTIDE
     Dosage: 0.215 INTERNATIONAL UNIT, QD
     Route: 050
     Dates: start: 20180904
  6. TEDUGLUTIDE [Suspect]
     Active Substance: TEDUGLUTIDE
     Dosage: 0.215 INTERNATIONAL UNIT, QD
     Route: 050
     Dates: start: 20180904
  7. TEDUGLUTIDE [Suspect]
     Active Substance: TEDUGLUTIDE
     Indication: SHORT-BOWEL SYNDROME
     Dosage: 0.315 INTERNATIONAL UNIT
     Route: 058
     Dates: start: 20180904
  8. TEDUGLUTIDE [Suspect]
     Active Substance: TEDUGLUTIDE
     Indication: SHORT-BOWEL SYNDROME
     Dosage: 0.315 INTERNATIONAL UNIT
     Route: 058
     Dates: start: 20180904

REACTIONS (4)
  - Urine output increased [Not Recovered/Not Resolved]
  - Faecal volume decreased [Not Recovered/Not Resolved]
  - Prostatomegaly [Not Recovered/Not Resolved]
  - Weight decreased [Unknown]
